FAERS Safety Report 16150533 (Version 2)
Quarter: 2021Q4

REPORT INFORMATION
  Report Type: Spontaneous
  Country: US (occurrence: US)
  Receive Date: 20190402
  Receipt Date: 20211013
  Transmission Date: 20220303
  Serious: Yes (Other)
  Sender: FDA-Public Use
  Company Number: PHEH2019US014276

PATIENT
  Sex: Female

DRUGS (1)
  1. NITROFURANTOIN [Suspect]
     Active Substance: NITROFURANTOIN
     Indication: Urinary tract infection
     Dosage: 1 DF, BID
     Route: 048
     Dates: start: 20190228, end: 20190228

REACTIONS (7)
  - Dyspnoea [Unknown]
  - Gait disturbance [Unknown]
  - Tremor [Unknown]
  - Ocular hyperaemia [Unknown]
  - Decreased appetite [Unknown]
  - Dizziness [Unknown]
  - Headache [Unknown]
